FAERS Safety Report 7712618-9 (Version None)
Quarter: 2011Q3

REPORT INFORMATION
  Report Type: 
  Country: None (occurrence: None)
  Receive Date: 20110826
  Receipt Date: 20110816
  Transmission Date: 20111222
  Serious: Yes (Other)
  Sender: FDA-Public Use
  Company Number: US-JNJFOC-20110810659

PATIENT
  Age: 69 Year
  Sex: Male

DRUGS (1)
  1. NICOTINE [Suspect]
     Indication: SMOKING CESSATION THERAPY
     Dosage: STARTING USING IN NOVEMBER APPROXIMATELY 5 YEARS AGO.
     Route: 065

REACTIONS (3)
  - NICOTINE DEPENDENCE [None]
  - DYSPHONIA [None]
  - INTENTIONAL DRUG MISUSE [None]
